FAERS Safety Report 10677348 (Version 2)
Quarter: 2014Q4

REPORT INFORMATION
  Report Type: Spontaneous
  Country: KR (occurrence: KR)
  Receive Date: 20141226
  Receipt Date: 20141226
  Transmission Date: 20150529
  Serious: Yes (Hospitalization, Other)
  Sender: FDA-Public Use
  Company Number: KR-OTSUKA-US-2014-14123

PATIENT

DRUGS (9)
  1. DACOGEN [Suspect]
     Active Substance: DECITABINE
     Dosage: 20 MG/M2, UNKNOWN
     Route: 042
     Dates: start: 20140421, end: 20140425
  2. DACOGEN [Suspect]
     Active Substance: DECITABINE
     Dosage: 20 MG/M2, UNKNOWN
     Route: 042
     Dates: start: 20140609, end: 20140613
  3. PETHIDINE HCL [Concomitant]
     Indication: PAIN PROPHYLAXIS
     Dosage: 25 MG MILLIGRAM(S), DAILY DOSE
     Route: 042
     Dates: start: 20140318, end: 20140318
  4. AROBEST [Concomitant]
     Indication: MUSCLE RELAXANT THERAPY
     Dosage: 20 MG MILLIGRAM(S), TID
     Route: 048
     Dates: start: 20140318, end: 20140622
  5. DACOGEN [Suspect]
     Active Substance: DECITABINE
     Dosage: 20 MG/M2, UNKNOWN
     Route: 042
     Dates: start: 20140310, end: 20140314
  6. DACOGEN [Suspect]
     Active Substance: DECITABINE
     Dosage: 20 MG/M2, UNKNOWN
     Route: 042
     Dates: start: 20140714, end: 20140718
  7. DACOGEN [Suspect]
     Active Substance: DECITABINE
     Dosage: 20 MG/M2, UNKNOWN
     Route: 042
     Dates: start: 20140818, end: 20140822
  8. DACOGEN [Suspect]
     Active Substance: DECITABINE
     Indication: ACUTE MYELOID LEUKAEMIA
     Dosage: 20 MG/M2, UNKNOWN
     Route: 042
     Dates: start: 20140205, end: 20140209
  9. CHLORPHENIRAMINE MALEATE. [Concomitant]
     Active Substance: CHLORPHENIRAMINE MALEATE
     Indication: TRANSFUSION
     Dosage: 4 MG MILLIGRAM(S), DAILY DOSE
     Route: 042
     Dates: start: 20140318, end: 20140318

REACTIONS (3)
  - Febrile neutropenia [Recovered/Resolved]
  - Neck mass [Recovered/Resolved]
  - Acute myeloid leukaemia [Recovered/Resolved]

NARRATIVE: CASE EVENT DATE: 20140317
